FAERS Safety Report 20326720 (Version 1)
Quarter: 2022Q1

REPORT INFORMATION
  Report Type: Report from Study
  Country: US (occurrence: US)
  Receive Date: 20220112
  Receipt Date: 20220112
  Transmission Date: 20220423
  Serious: Yes (Other)
  Sender: FDA-Public Use
  Company Number: US-SA-SAC20220107000898

PATIENT
  Age: 68 Year
  Sex: Male

DRUGS (4)
  1. DUPILUMAB [Suspect]
     Active Substance: DUPILUMAB
     Indication: Dermatitis atopic
     Dosage: 150 MG/ML, QOW
     Route: 058
     Dates: start: 20200228
  2. ASPIRIN [Concomitant]
     Active Substance: ASPIRIN
     Route: 065
  3. PLAVIX [Concomitant]
     Active Substance: CLOPIDOGREL BISULFATE
     Route: 065
  4. NYSTATIN [Concomitant]
     Active Substance: NYSTATIN
     Route: 065

REACTIONS (2)
  - Myocardial infarction [Recovering/Resolving]
  - Blood cholesterol abnormal [Recovering/Resolving]
